FAERS Safety Report 6575122-X (Version None)
Quarter: 2010Q1

REPORT INFORMATION
  Report Type: 
  Country: None (occurrence: None)
  Receive Date: 20100209
  Receipt Date: 20100208
  Transmission Date: 20100710
  Serious: Yes (Death)
  Sender: FDA-Public Use
  Company Number: US-ROXANE LABORATORIES, INC.-2010-DE-00109GD

PATIENT
  Age: 25 Year
  Sex: Male

DRUGS (2)
  1. SERTRALINE HCL [Suspect]
  2. METHADONE HCL [Suspect]

REACTIONS (6)
  - ACCIDENTAL POISONING [None]
  - BRAIN OEDEMA [None]
  - DRUG INTERACTION [None]
  - INCORRECT ROUTE OF DRUG ADMINISTRATION [None]
  - PULMONARY OEDEMA [None]
  - SUBSTANCE ABUSE [None]
